FAERS Safety Report 4916497-4 (Version None)
Quarter: 2006Q1

REPORT INFORMATION
  Report Type: 
  Country: None (occurrence: None)
  Receive Date: 20060220
  Receipt Date: 20060120
  Transmission Date: 20060701
  Serious: Yes (Other)
  Sender: FDA-Public Use
  Company Number: PHNU2006DE00667

PATIENT
  Sex: Male
  Weight: 90 kg

DRUGS (1)
  1. ZOMETA [Suspect]
     Indication: PROSTATE CANCER METASTATIC
     Dosage: UNK, UNK
     Dates: start: 20031015

REACTIONS (3)
  - OSTEITIS [None]
  - PURULENCE [None]
  - TOOTH INFECTION [None]
